FAERS Safety Report 24442631 (Version 2)
Quarter: 2024Q4

REPORT INFORMATION
  Report Type: Report from Study
  Country: US (occurrence: US)
  Receive Date: 20241016
  Receipt Date: 20241017
  Transmission Date: 20250114
  Serious: No
  Sender: ROCHE
  Company Number: US-ROCHE-3558818

PATIENT
  Age: 71 Year
  Sex: Male

DRUGS (1)
  1. HEMLIBRA [Suspect]
     Active Substance: EMICIZUMAB-KXWH
     Indication: Coagulation factor deficiency
     Dosage: 1ST DOSE: 600 MG SQ ON DAY 1, DAY 2: (2ND DOSE) IS 300 MG SQ; DAY 7: (3RD DOSE) 150 MG, DATE OF SERV
     Route: 058
     Dates: start: 20240429

REACTIONS (2)
  - Off label use [Unknown]
  - No adverse event [Unknown]
